FAERS Safety Report 19225916 (Version 1)
Quarter: 2021Q2

REPORT INFORMATION
  Report Type: Spontaneous
  Country: IT (occurrence: IT)
  Receive Date: 20210506
  Receipt Date: 20210506
  Transmission Date: 20210717
  Serious: Yes (Hospitalization)
  Sender: FDA-Public Use
  Company Number: IT-BAYER-2021-132638

PATIENT
  Age: 44 Year
  Sex: Female
  Weight: 50 kg

DRUGS (2)
  1. DELTACORTENE [Suspect]
     Active Substance: PREDNISONE
     Indication: PHARYNGITIS
     Route: 048
     Dates: start: 20190721, end: 20190728
  2. CIPROXIN 500 MG [Suspect]
     Active Substance: CIPROFLOXACIN
     Indication: PHARYNGITIS
     Dosage: 500 MG
     Route: 048
     Dates: start: 20190719, end: 20190728

REACTIONS (2)
  - Carotid artery dissection [Recovering/Resolving]
  - Vertebral artery dissection [Recovering/Resolving]

NARRATIVE: CASE EVENT DATE: 20190729
